FAERS Safety Report 6360817-3 (Version None)
Quarter: 2009Q3

REPORT INFORMATION
  Report Type: 
  Country: None (occurrence: None)
  Receive Date: 20090918
  Receipt Date: 20090903
  Transmission Date: 20100115
  Serious: Yes (Other)
  Sender: FDA-Public Use
  Company Number: US-ROCHE-651168

PATIENT
  Age: 24 Year
  Sex: Female

DRUGS (5)
  1. PEG-INTERFERON ALFA 2A (RO 25-8310) [Suspect]
     Dosage: DOSE REPORTED AS 25.7143 MG
     Route: 058
     Dates: start: 20081117, end: 20090727
  2. RIBAVIRIN [Suspect]
     Route: 048
     Dates: start: 20081117, end: 20090727
  3. BLINDED INVESTIGATIONAL DRUG [Suspect]
     Dosage: DOSE BLINDED
     Route: 048
     Dates: start: 20081117, end: 20090727
  4. CILEST [Concomitant]
     Indication: CONTRACEPTION
     Dosage: DRUG ALSO REPORTED AS ORTHO TRI-CYCLEN
     Dates: start: 20081103
  5. IBUPROFEN [Concomitant]
     Dates: start: 20090324

REACTIONS (1)
  - CONVULSION [None]
